FAERS Safety Report 17734823 (Version 1)
Quarter: 2020Q2

REPORT INFORMATION
  Report Type: Spontaneous
  Country: US (occurrence: US)
  Receive Date: 20200501
  Receipt Date: 20200501
  Transmission Date: 20200714
  Serious: Yes (Hospitalization)
  Sender: FDA-Public Use
  Company Number: US-JUBILANT CADISTA PHARMACEUTICALS-2020JUB00150

PATIENT
  Sex: Female

DRUGS (2)
  1. PREDNISONE. [Suspect]
     Active Substance: PREDNISONE
  2. METHYLPREDNISOLONE (IV) [Suspect]
     Active Substance: METHYLPREDNISOLONE
     Route: 042

REACTIONS (3)
  - Insomnia [Unknown]
  - Unevaluable event [Unknown]
  - Dyspnoea [Unknown]
